FAERS Safety Report 4920423-1 (Version None)
Quarter: 2006Q1

REPORT INFORMATION
  Report Type: 
  Country: None (occurrence: None)
  Receive Date: 20060216
  Receipt Date: 20060206
  Transmission Date: 20060701
  Serious: Yes (Hospitalization)
  Sender: FDA-Public Use
  Company Number: 2006019279

PATIENT
  Age: 63 Year
  Sex: 0

DRUGS (3)
  1. CELECOXIB (CELECOXIB) [Suspect]
     Indication: SHOULDER PAIN
     Dosage: 200 MG (200 MG, 1 IN 1 D), ORAL
     Route: 048
  2. ENALAPRIL MALEATE [Concomitant]
  3. LOVASTATIN [Concomitant]

REACTIONS (10)
  - BLOOD PH DECREASED [None]
  - BREATH SOUNDS ABNORMAL [None]
  - CHEST X-RAY ABNORMAL [None]
  - COMPUTERISED TOMOGRAM ABNORMAL [None]
  - COUGH [None]
  - DYSPNOEA EXERTIONAL [None]
  - INTERSTITIAL LUNG DISEASE [None]
  - OXYGEN SATURATION DECREASED [None]
  - PO2 DECREASED [None]
  - SPIROMETRY ABNORMAL [None]
